FAERS Safety Report 9431924 (Version 2)
Quarter: 2013Q3

REPORT INFORMATION
  Report Type: Spontaneous
  Country: NL (occurrence: NL)
  Receive Date: 20130731
  Receipt Date: 20130802
  Transmission Date: 20140515
  Serious: Yes (Death, Other)
  Sender: FDA-Public Use
  Company Number: PHHY2013NL080028

PATIENT
  Sex: Female

DRUGS (3)
  1. CERTICAN [Suspect]
     Indication: PROPHYLAXIS AGAINST TRANSPLANT REJECTION
     Dosage: UNK UKN, UNK
  2. MORPHINE [Concomitant]
     Dosage: UNK UKN, UNK
  3. CELLCEPT [Concomitant]

REACTIONS (4)
  - Death [Fatal]
  - Metastases to lung [Unknown]
  - Pulmonary oedema [Unknown]
  - Dyspnoea [Unknown]
